FAERS Safety Report 17957359 (Version 1)
Quarter: 2020Q2

REPORT INFORMATION
  Report Type: Spontaneous
  Country: US (occurrence: US)
  Receive Date: 20200629
  Receipt Date: 20200629
  Transmission Date: 20200714
  Serious: Yes (Other)
  Sender: FDA-Public Use
  Company Number: US-PFIZER INC-2020248480

PATIENT
  Age: 60 Year
  Sex: Male
  Weight: 136.87 kg

DRUGS (8)
  1. NORCO [Concomitant]
     Active Substance: ACETAMINOPHEN\HYDROCODONE BITARTRATE
     Dosage: UNK ( HYDROCODONE BITARTRATE 5MG-ACETAMINOPHEN 32 MG)
  2. BIOTIN [Concomitant]
     Active Substance: BIOTIN
     Dosage: 10000 UG[10000 MCG TAB RAPDIS]
  3. LEVO-T [Concomitant]
     Active Substance: LEVOTHYROXINE SODIUM
     Dosage: 125 UG[125 MCG TABLET]
  4. POTASSIUM [Concomitant]
     Active Substance: POTASSIUM
     Dosage: 99 MG[595(99)MG TABLET]
  5. METHOTREXATE. [Concomitant]
     Active Substance: METHOTREXATE
     Dosage: 1 G[1 G VIAL]
  6. MAGNESIUM [Concomitant]
     Active Substance: MAGNESIUM
     Dosage: 100 MG
  7. XELJANZ XR [Suspect]
     Active Substance: TOFACITINIB CITRATE
     Indication: RHEUMATOID ARTHRITIS
     Dosage: 11 MG, DAILY
     Route: 048
     Dates: start: 20191201
  8. MELOXICAM. [Concomitant]
     Active Substance: MELOXICAM
     Dosage: 15 MG

REACTIONS (3)
  - Asthenia [Unknown]
  - Fatigue [Unknown]
  - Pituitary tumour [Unknown]
